FAERS Safety Report 7394157-0 (Version None)
Quarter: 2011Q2

REPORT INFORMATION
  Report Type: 
  Country: None (occurrence: None)
  Receive Date: 20110405
  Receipt Date: 20110331
  Transmission Date: 20111010
  Serious: Yes (Other)
  Sender: FDA-Public Use
  Company Number: US-AMGEN-USASP2011014628

PATIENT
  Age: 78 Year
  Sex: Female
  Weight: 53.515 kg

DRUGS (5)
  1. ESTRADIOL [Concomitant]
  2. MOBIC [Concomitant]
  3. LISINOPRIL [Concomitant]
  4. PROLIA [Suspect]
     Indication: OSTEOPOROSIS POSTMENOPAUSAL
     Dosage: 60 MG, Q6MO
     Route: 058
     Dates: start: 20100914
  5. SYNTHROID [Concomitant]

REACTIONS (4)
  - LIP SWELLING [None]
  - LIP DISORDER [None]
  - SWELLING FACE [None]
  - HYPOAESTHESIA FACIAL [None]
